FAERS Safety Report 8197938-9 (Version None)
Quarter: 2012Q1

REPORT INFORMATION
  Report Type: 
  Country: None (occurrence: None)
  Receive Date: 20120309
  Receipt Date: 20120301
  Transmission Date: 20120608
  Serious: Yes (Life-Threatening, Hospitalization)
  Sender: FDA-Public Use
  Company Number: NL-MEDIMMUNE-MEDI-0013916

PATIENT
  Sex: Female
  Weight: 4.15 kg

DRUGS (5)
  1. SYNAGIS [Suspect]
     Route: 030
     Dates: start: 20111209, end: 20120301
  2. ALDACTAZIDE-A [Concomitant]
     Indication: BRONCHOPULMONARY DYSPLASIA
  3. SYNAGIS [Suspect]
     Indication: PREMATURE BABY
     Route: 030
     Dates: start: 20110928, end: 20111027
  4. FERRO [Concomitant]
     Dates: start: 20110101
  5. OMEPRAZOLE MAGNESIUM [Concomitant]

REACTIONS (10)
  - PALLOR [None]
  - PNEUMONIA [None]
  - CARDIAC ARREST [None]
  - HYPOTONIA [None]
  - CARDIAC MALPOSITION [None]
  - PULMONARY CONGESTION [None]
  - RHINOVIRUS INFECTION [None]
  - PYREXIA [None]
  - RESPIRATORY FAILURE [None]
  - NASAL OBSTRUCTION [None]
